FAERS Safety Report 7666584-5 (Version None)
Quarter: 2011Q3

REPORT INFORMATION
  Report Type: 
  Country: None (occurrence: None)
  Receive Date: 20110806
  Receipt Date: 20110330
  Transmission Date: 20111222
  Serious: No
  Sender: FDA-Public Use
  Company Number: US-ABBOTT-11P-163-0715073-00

PATIENT
  Sex: Male
  Weight: 67.192 kg

DRUGS (4)
  1. UNKNOWN WATER PILL [Concomitant]
     Indication: HYPERTENSION
  2. OXYCODONE HCL [Concomitant]
     Indication: BACK PAIN
  3. NIASPAN [Suspect]
     Indication: HIGH DENSITY LIPOPROTEIN DECREASED
     Dates: start: 20110322, end: 20110327
  4. ATENOLOL [Concomitant]
     Indication: HYPERTENSION

REACTIONS (1)
  - RASH [None]
